FAERS Safety Report 14957396 (Version 5)
Quarter: 2021Q2

REPORT INFORMATION
  Report Type: Report from Study
  Country: DE (occurrence: DE)
  Receive Date: 20180531
  Receipt Date: 20210406
  Transmission Date: 20210716
  Serious: Yes (Congenital Anomaly, Other)
  Sender: FDA-Public Use
  Company Number: DE-PFIZER INC-2018218299

PATIENT
  Sex: Male
  Weight: 2.9 kg

DRUGS (4)
  1. PARACETAMOL [Suspect]
     Active Substance: ACETAMINOPHEN
     Indication: RHEUMATOID ARTHRITIS
     Dosage: GESTATIONAL WEEK OF EXPOSURE? 17?21
     Route: 064
  2. DICLOFENAC SODIUM. [Suspect]
     Active Substance: DICLOFENAC SODIUM
     Indication: RHEUMATOID ARTHRITIS
     Dosage: 100 MG, PRN,  AS NEEDED, GESTSTIONAL WEEK OF EXPOSURE 0?19 + 4
     Route: 064
  3. SULFASALAZINE. [Suspect]
     Active Substance: SULFASALAZINE
     Indication: RHEUMATOID ARTHRITIS
     Dosage: UNK GESTATIONAL WEEK OF EXPOSURE? 0?17
     Route: 064
  4. HYDROXYCHLOROQUINE SULFATE. [Suspect]
     Active Substance: HYDROXYCHLOROQUINE SULFATE
     Indication: RHEUMATOID ARTHRITIS
     Dosage: GESTATIONAL WEEK OF EXPOSURE? 0?13
     Route: 064

REACTIONS (6)
  - Microcephaly [Unknown]
  - Foetal exposure during pregnancy [Unknown]
  - Cryopyrin associated periodic syndrome [Unknown]
  - Fragile X syndrome [Unknown]
  - Trisomy 8 [Unknown]
  - Medium-chain acyl-coenzyme A dehydrogenase deficiency [Unknown]
